FAERS Safety Report 20350957 (Version 1)
Quarter: 2022Q1

REPORT INFORMATION
  Report Type: Spontaneous
  Country: US (occurrence: None)
  Receive Date: 20220118
  Receipt Date: 20220118
  Transmission Date: 20220423
  Serious: Yes (Other)
  Sender: FDA-Public Use
  Company Number: None

PATIENT
  Age: 41 Year
  Sex: Male

DRUGS (1)
  1. REGEN-COV [Suspect]
     Active Substance: CASIRIVIMAB\IMDEVIMAB

REACTIONS (5)
  - Injection site pain [None]
  - Erythema [None]
  - Rash papular [None]
  - Angioedema [None]
  - Pain [None]

NARRATIVE: CASE EVENT DATE: 20220118
